FAERS Safety Report 4459767-9 (Version None)
Quarter: 2004Q3

REPORT INFORMATION
  Report Type: 
  Country: None (occurrence: None)
  Receive Date: 20040928
  Receipt Date: 20040224
  Transmission Date: 20050211
  Serious: No
  Sender: FDA-Public Use
  Company Number: US-BRISTOL-MYERS SQUIBB COMPANY-12516704

PATIENT
  Age: 19 Year
  Sex: Female

DRUGS (2)
  1. KENALOG-40 [Suspect]
     Route: 030
     Dates: start: 20030909
  2. LOESTRIN 1.5/30 [Concomitant]
     Indication: MENSTRUATION IRREGULAR
     Route: 048

REACTIONS (1)
  - INJECTION SITE ATROPHY [None]
